FAERS Safety Report 5822542-4 (Version None)
Quarter: 2008Q3

REPORT INFORMATION
  Report Type: 
  Country: None (occurrence: None)
  Receive Date: 20080725
  Receipt Date: 20080130
  Transmission Date: 20090109
  Serious: No
  Sender: FDA-Public Use
  Company Number: US-AMGEN-KDL263408

PATIENT
  Sex: Male

DRUGS (4)
  1. PROCRIT [Suspect]
     Indication: ANAEMIA OF MALIGNANT DISEASE
     Dates: start: 20080109
  2. SPIRIVA [Concomitant]
     Dates: start: 20071220
  3. XOPENEX [Concomitant]
  4. TRIPTORELIN [Concomitant]
     Route: 030
     Dates: start: 20071227

REACTIONS (2)
  - BONE PAIN [None]
  - JOINT SWELLING [None]
